FAERS Safety Report 4537931-8 (Version None)
Quarter: 2004Q4

REPORT INFORMATION
  Report Type: 
  Country: None (occurrence: None)
  Receive Date: 20041224
  Receipt Date: 20041213
  Transmission Date: 20050328
  Serious: Yes (Hospitalization)
  Sender: FDA-Public Use
  Company Number: PHHO2004AR17888

PATIENT
  Sex: Female

DRUGS (1)
  1. ZELNORM [Suspect]
     Indication: IRRITABLE BOWEL SYNDROME
     Dosage: 2 TABLETS/DAY
     Dates: start: 20041101, end: 20041210

REACTIONS (5)
  - ABDOMINAL RIGIDITY [None]
  - CONSTIPATION [None]
  - FAECAL VOLUME INCREASED [None]
  - PAIN [None]
  - SWELLING [None]
